FAERS Safety Report 23182606 (Version 1)
Quarter: 2023Q4

REPORT INFORMATION
  Report Type: Spontaneous
  Country: JP (occurrence: JP)
  Receive Date: 20231114
  Receipt Date: 20231114
  Transmission Date: 20240110
  Serious: Yes (Death, Other)
  Sender: FDA-Public Use
  Company Number: JP-PFIZER INC-PV202300184377

PATIENT
  Age: 88 Year

DRUGS (2)
  1. PAXLOVID [Suspect]
     Active Substance: NIRMATRELVIR\RITONAVIR
     Indication: COVID-19
     Dosage: UNK
     Route: 048
     Dates: start: 20221110
  2. VEKLURY [Concomitant]
     Active Substance: REMDESIVIR
     Dosage: UNK
     Route: 041
     Dates: start: 20221109

REACTIONS (2)
  - Death [Fatal]
  - White blood cell count abnormal [Unknown]
